FAERS Safety Report 7631605-2 (Version None)
Quarter: 2011Q3

REPORT INFORMATION
  Report Type: 
  Country: None (occurrence: None)
  Receive Date: 20110725
  Receipt Date: 20110118
  Transmission Date: 20111222
  Serious: No
  Sender: FDA-Public Use
  Company Number: US-BRISTOL-MYERS SQUIBB COMPANY-15491582

PATIENT
  Age: 48 Year
  Sex: Female

DRUGS (2)
  1. COUMADIN [Suspect]
  2. ABILIFY [Suspect]
     Indication: BIPOLAR DISORDER
     Dosage: DURATION: 7 TO 8 MONTHS
     Dates: start: 20100101

REACTIONS (2)
  - ALOPECIA [None]
  - WEIGHT INCREASED [None]
